FAERS Safety Report 25374758 (Version 1)
Quarter: 2025Q2

REPORT INFORMATION
  Report Type: Spontaneous
  Country: US (occurrence: None)
  Receive Date: 20250528
  Receipt Date: 20250528
  Transmission Date: 20250716
  Serious: Yes (Other)
  Sender: FDA-CTU
  Company Number: None

PATIENT
  Age: 43 Year
  Sex: Female
  Weight: 104.4 kg

DRUGS (1)
  1. KETOCONAZOLE [Suspect]
     Active Substance: KETOCONAZOLE
     Indication: Fungal infection
     Dates: start: 20250523, end: 20250527

REACTIONS (3)
  - Product communication issue [None]
  - Product formulation issue [None]
  - Condition aggravated [None]

NARRATIVE: CASE EVENT DATE: 20250527
